FAERS Safety Report 22397750 (Version 1)
Quarter: 2023Q2

REPORT INFORMATION
  Report Type: Spontaneous
  Country: CN (occurrence: None)
  Receive Date: 20230602
  Receipt Date: 20230602
  Transmission Date: 20230721
  Serious: Yes (Hospitalization)
  Sender: FDA-Public Use
  Company Number: CN-ROCHE-3358258

PATIENT
  Age: 36 Year
  Sex: Male
  Weight: 76 kg

DRUGS (4)
  1. GAZYVA [Suspect]
     Active Substance: OBINUTUZUMAB
     Indication: Non-Hodgkin^s lymphoma
     Route: 041
     Dates: start: 20230509, end: 20230509
  2. BENDAMUSTINE HYDROCHLORIDE [Suspect]
     Active Substance: BENDAMUSTINE HYDROCHLORIDE
     Indication: Non-Hodgkin^s lymphoma
     Route: 041
     Dates: start: 20230509, end: 20230510
  3. SODIUM CHLORIDE [Concomitant]
     Active Substance: SODIUM CHLORIDE
     Route: 041
     Dates: start: 20230509, end: 20230509
  4. SODIUM CHLORIDE [Concomitant]
     Active Substance: SODIUM CHLORIDE
     Route: 041
     Dates: start: 20230509, end: 20230510

REACTIONS (1)
  - Liver injury [Recovering/Resolving]

NARRATIVE: CASE EVENT DATE: 20230510
